FAERS Safety Report 6260031-6 (Version None)
Quarter: 2009Q3

REPORT INFORMATION
  Report Type: 
  Country: None (occurrence: None)
  Receive Date: 20090708
  Receipt Date: 20090626
  Transmission Date: 20100115
  Serious: Yes (Other)
  Sender: FDA-Public Use
  Company Number: US-ELI_LILLY_AND_COMPANY-US200905003140

PATIENT
  Age: 39 Year
  Sex: Female

DRUGS (6)
  1. CYMBALTA [Suspect]
     Indication: FIBROMYALGIA
     Dosage: 1 D/F, UNK
     Route: 048
     Dates: start: 20080724, end: 20080731
  2. CYMBALTA [Suspect]
     Dosage: 60 MG, UNK
     Route: 048
     Dates: start: 20080801, end: 20080910
  3. CYMBALTA [Suspect]
     Dosage: 30 MG, UNK
  4. ULTRAM [Concomitant]
     Indication: PAIN
  5. PROVENTIL                               /USA/ [Concomitant]
     Indication: ASTHMA
     Dosage: 1 D/F, UNK
     Route: 055
  6. ALCOHOL [Concomitant]

REACTIONS (3)
  - ALANINE AMINOTRANSFERASE INCREASED [None]
  - ASPARTATE AMINOTRANSFERASE INCREASED [None]
  - HEPATITIS C [None]
